FAERS Safety Report 12693157 (Version 1)
Quarter: 2016Q3

REPORT INFORMATION
  Report Type: Report from Study
  Country: BR (occurrence: BR)
  Receive Date: 20160829
  Receipt Date: 20160829
  Transmission Date: 20161109
  Serious: Yes (Death, Hospitalization)
  Sender: FDA-Public Use
  Company Number: PHHY2016BR117800

PATIENT
  Sex: Female
  Weight: 40 kg

DRUGS (1)
  1. EXELON PATCH [Suspect]
     Active Substance: RIVASTIGMINE
     Indication: PRODUCT USED FOR UNKNOWN INDICATION
     Dosage: PATCH 10 CM2, QD
     Route: 062

REACTIONS (3)
  - Myocardial infarction [Fatal]
  - Dementia Alzheimer^s type [Fatal]
  - Concomitant disease aggravated [Fatal]
